FAERS Safety Report 18166329 (Version 1)
Quarter: 2020Q3

REPORT INFORMATION
  Report Type: Report from Study
  Country: RU (occurrence: RU)
  Receive Date: 20200819
  Receipt Date: 20200819
  Transmission Date: 20201103
  Serious: Yes (Other)
  Sender: FDA-Public Use
  Company Number: RU-AUROBINDO-AUR-APL-2020-040267

PATIENT

DRUGS (2)
  1. AMOXICILLIN AND CLAVULANIC POTASSIUM [Suspect]
     Active Substance: AMOXICILLIN\CLAVULANATE POTASSIUM
     Indication: PRODUCT USED FOR UNKNOWN INDICATION
     Dosage: 1 GRAM, TWO TIMES A DAY  (FOR 5 DAYS)
     Route: 048
  2. CLINDAMYCIN. [Suspect]
     Active Substance: CLINDAMYCIN
     Indication: BACTERIAL VAGINOSIS
     Dosage: 100 MILLIGRAM
     Route: 067

REACTIONS (4)
  - Foetal exposure during pregnancy [Unknown]
  - Pneumonia [Unknown]
  - Premature baby [Unknown]
  - Preterm premature rupture of membranes [Unknown]
